FAERS Safety Report 19365470 (Version 1)
Quarter: 2021Q2

REPORT INFORMATION
  Report Type: Spontaneous
  Country: US (occurrence: US)
  Receive Date: 20210603
  Receipt Date: 20210603
  Transmission Date: 20210717
  Serious: No
  Sender: FDA-Public Use
  Company Number: None

PATIENT
  Age: 62 Year
  Sex: Female
  Weight: 103.5 kg

DRUGS (2)
  1. EYLEA [Suspect]
     Active Substance: AFLIBERCEPT
     Indication: MACULAR DEGENERATION
     Dosage: ?          QUANTITY:1 INJECTION(S);OTHER FREQUENCY:4 WEEKS;?
     Route: 047
     Dates: start: 20210602, end: 20210602
  2. OLMESARTAN [Concomitant]
     Active Substance: OLMESARTAN

REACTIONS (3)
  - Nausea [None]
  - Vitreous floaters [None]
  - Headache [None]

NARRATIVE: CASE EVENT DATE: 20210602
